FAERS Safety Report 6075272-0 (Version None)
Quarter: 2009Q1

REPORT INFORMATION
  Report Type: 
  Country: None (occurrence: None)
  Receive Date: 20090212
  Receipt Date: 20090202
  Transmission Date: 20090719
  Serious: Yes (Other)
  Sender: FDA-Public Use
  Company Number: PHHY2009BR03794

PATIENT
  Age: 57 Year
  Sex: Female
  Weight: 68 kg

DRUGS (2)
  1. TOFRANIL [Suspect]
     Indication: URGE INCONTINENCE
     Dosage: 1 DF, QD
     Route: 048
     Dates: start: 20090110
  2. TOFRANIL [Suspect]
     Dosage: 1 DF, BID

REACTIONS (10)
  - ANOREXIA [None]
  - ANXIETY [None]
  - DEPRESSION [None]
  - DISTURBANCE IN ATTENTION [None]
  - HYPERHIDROSIS [None]
  - IMPAIRED WORK ABILITY [None]
  - NAUSEA [None]
  - SOMNOLENCE [None]
  - TACHYCARDIA [None]
  - THROAT IRRITATION [None]
